FAERS Safety Report 4355237-7 (Version None)
Quarter: 2004Q2

REPORT INFORMATION
  Report Type: 
  Country: None (occurrence: None)
  Receive Date: 20040504
  Receipt Date: 20040421
  Transmission Date: 20050107
  Serious: Yes (Hospitalization)
  Sender: FDA-Public Use
  Company Number: 2004AP01027

PATIENT
  Age: 76 Year
  Sex: Male

DRUGS (14)
  1. IRESSA [Suspect]
     Indication: NON-SMALL CELL LUNG CANCER
     Dosage: 250 MG DAILY PO
     Route: 048
     Dates: start: 20031023, end: 20031107
  2. IRESSA [Suspect]
     Indication: SQUAMOUS CELL CARCINOMA
     Dosage: 250 MG DAILY PO
     Route: 048
     Dates: start: 20031023, end: 20031107
  3. ALINAMIN F [Concomitant]
  4. CYANOCOBALAMIN [Concomitant]
  5. FLAVITAN [Concomitant]
  6. NAUZELIN [Concomitant]
  7. PRIMPERAN INJ [Concomitant]
  8. PURSENNID [Concomitant]
  9. BUFFERIN [Concomitant]
  10. CARBOPLATIN [Concomitant]
  11. PACLITAXEL [Concomitant]
  12. GEMCITABINE [Concomitant]
  13. DOCETAXEL [Concomitant]
  14. DAUNORUBICIN HCL [Concomitant]

REACTIONS (3)
  - DYSPNOEA [None]
  - LUNG DISORDER [None]
  - OXYGEN SATURATION DECREASED [None]
